FAERS Safety Report 24317505 (Version 1)
Quarter: 2024Q3

REPORT INFORMATION
  Report Type: Spontaneous
  Country: US (occurrence: None)
  Receive Date: 20240913
  Receipt Date: 20240913
  Transmission Date: 20241017
  Serious: No
  Sender: Public
  Company Number: None

PATIENT
  Sex: Female

DRUGS (2)
  1. CIBINQO [Suspect]
     Active Substance: ABROCITINIB
     Indication: Urticaria
     Dosage: FREQUENCY : DAILY;?
     Route: 058
     Dates: start: 20240529
  2. CIBINQO [Suspect]
     Active Substance: ABROCITINIB
     Indication: Dermatitis atopic

REACTIONS (8)
  - Therapy interrupted [None]
  - Stomatitis [None]
  - Gastroenteritis viral [None]
  - Infection [None]
  - Herpes simplex [None]
  - Abdominal discomfort [None]
  - Gait disturbance [None]
  - Deep vein thrombosis [None]
